FAERS Safety Report 7473056-X (Version None)
Quarter: 2011Q2

REPORT INFORMATION
  Report Type: 
  Country: None (occurrence: None)
  Receive Date: 20110511
  Receipt Date: 20110429
  Transmission Date: 20111010
  Serious: Yes (Other)
  Sender: FDA-Public Use
  Company Number: FI-ELI_LILLY_AND_COMPANY-FI201102003117

PATIENT
  Age: 69 Year
  Sex: Male

DRUGS (2)
  1. RISPERDAL CONSTA [Concomitant]
     Dosage: 50 MG, UNK
     Route: 030
  2. OLANZAPINE [Suspect]
     Dosage: 300 MG, WITHIN 10DAYS INTERVALS
     Route: 030

REACTIONS (8)
  - INJECTION SITE INDURATION [None]
  - MUSCLE SPASMS [None]
  - OFF LABEL USE [None]
  - EXTRAPYRAMIDAL DISORDER [None]
  - OVERDOSE [None]
  - INJECTION SITE RASH [None]
  - NEUTROPENIA [None]
  - DRUG INEFFECTIVE [None]
